FAERS Safety Report 12577610 (Version 1)
Quarter: 2016Q3

REPORT INFORMATION
  Report Type: Spontaneous
  Country: US (occurrence: US)
  Receive Date: 20160720
  Receipt Date: 20160720
  Transmission Date: 20161109
  Serious: No
  Sender: FDA-Public Use
  Company Number: US-ASTRAZENECA-2015SF28795

PATIENT
  Sex: Male
  Weight: 80.7 kg

DRUGS (8)
  1. BRILINTA [Suspect]
     Active Substance: TICAGRELOR
     Indication: ACUTE CORONARY SYNDROME
     Route: 048
     Dates: start: 201512
  2. METFORMIN [Concomitant]
     Active Substance: METFORMIN HYDROCHLORIDE
  3. CRESTOR [Suspect]
     Active Substance: ROSUVASTATIN CALCIUM
     Route: 048
  4. ESTALIN [Concomitant]
  5. ISOSORBIDE. [Concomitant]
     Active Substance: ISOSORBIDE
  6. ASPIRIN. [Concomitant]
     Active Substance: ASPIRIN
  7. TRAVATAN [Concomitant]
     Active Substance: TRAVOPROST
  8. ALLEGRA [Concomitant]
     Active Substance: FEXOFENADINE HYDROCHLORIDE

REACTIONS (12)
  - Urine output decreased [Unknown]
  - Influenza [Unknown]
  - Laryngitis [Unknown]
  - Epistaxis [Unknown]
  - Back pain [Unknown]
  - Sinus pain [Unknown]
  - Tongue biting [Unknown]
  - Mouth haemorrhage [Unknown]
  - Cough [Unknown]
  - Arthralgia [Unknown]
  - Platelet count decreased [Unknown]
  - Sinus disorder [Unknown]
